FAERS Safety Report 5430317-3 (Version None)
Quarter: 2007Q3

REPORT INFORMATION
  Report Type: 
  Country: None (occurrence: None)
  Receive Date: 20070830
  Receipt Date: 20070824
  Transmission Date: 20080115
  Serious: Yes (Other)
  Sender: FDA-Public Use
  Company Number: PHEH2007US09438

PATIENT
  Age: 27 Year
  Sex: Female
  Weight: 86 kg

DRUGS (1)
  1. LETROZOLE [Suspect]
     Indication: OVULATION INDUCTION
     Dosage: 5 MG, QD
     Route: 048
     Dates: start: 20070120, end: 20070125

REACTIONS (2)
  - ABORTION SPONTANEOUS [None]
  - UTERINE DILATION AND CURETTAGE [None]
